FAERS Safety Report 22612473 (Version 2)
Quarter: 2023Q4

REPORT INFORMATION
  Report Type: Spontaneous
  Country: DE (occurrence: DE)
  Receive Date: 20230617
  Receipt Date: 20231101
  Transmission Date: 20240109
  Serious: Yes (Hospitalization)
  Sender: FDA-Public Use
  Company Number: DE-SAMSUNG BIOEPIS-SB-2023-12825

PATIENT
  Age: 68 Year
  Sex: Male
  Weight: 107 kg

DRUGS (12)
  1. FLUOROURACIL [Suspect]
     Active Substance: FLUOROURACIL
     Indication: HER2 positive gastric cancer
     Dosage: 5950 MG
     Route: 042
     Dates: start: 20230425
  2. FLUOROURACIL [Suspect]
     Active Substance: FLUOROURACIL
     Dosage: 2600 MG
     Route: 042
     Dates: start: 20230425
  3. FLUOROURACIL [Suspect]
     Active Substance: FLUOROURACIL
     Dosage: 5850 MG
     Route: 042
     Dates: start: 20230425
  4. OXALIPLATIN [Suspect]
     Active Substance: OXALIPLATIN
     Indication: HER2 positive gastric cancer
     Dosage: 190 MG
     Route: 042
     Dates: start: 20230424
  5. OXALIPLATIN [Suspect]
     Active Substance: OXALIPLATIN
     Dosage: 195 MG
     Route: 042
     Dates: start: 20230425
  6. OXALIPLATIN [Suspect]
     Active Substance: OXALIPLATIN
     Dosage: 85 MG
     Route: 042
     Dates: start: 20230425
  7. DOCETAXEL [Suspect]
     Active Substance: DOCETAXEL
     Indication: HER2 positive gastric cancer
     Dosage: 112 MG
     Route: 042
     Dates: start: 20230424
  8. DOCETAXEL [Suspect]
     Active Substance: DOCETAXEL
     Dosage: 114 MG
     Route: 042
     Dates: start: 20230425
  9. DOCETAXEL [Suspect]
     Active Substance: DOCETAXEL
     Dosage: 50 MG
     Route: 042
     Dates: start: 20230425
  10. PEMBROLIZUMAB [Suspect]
     Active Substance: PEMBROLIZUMAB
     Indication: HER2 positive gastric cancer
     Dosage: DOSE: 200 (UNSPECIFIED UNIT)
     Route: 042
     Dates: start: 20230424
  11. LEUCOVORIN [Suspect]
     Active Substance: LEUCOVORIN\LEUCOVORIN CALCIUM
     Indication: HER2 positive gastric cancer
     Dosage: 450 MG
     Route: 042
     Dates: start: 20230424
  12. LEUCOVORIN [Suspect]
     Active Substance: LEUCOVORIN\LEUCOVORIN CALCIUM
     Dosage: 200 MG
     Route: 042
     Dates: start: 20230425

REACTIONS (2)
  - Gastric stenosis [Recovered/Resolved]
  - Diarrhoea [Recovered/Resolved]

NARRATIVE: CASE EVENT DATE: 20230504
